FAERS Safety Report 21076591 (Version 1)
Quarter: 2022Q3

REPORT INFORMATION
  Report Type: Spontaneous
  Country: US (occurrence: None)
  Receive Date: 20220713
  Receipt Date: 20220713
  Transmission Date: 20221027
  Serious: No
  Sender: FDA-Public Use
  Company Number: None

PATIENT
  Age: 78 Year
  Sex: Female
  Weight: 68.4 kg

DRUGS (13)
  1. CAPECITABINE [Suspect]
     Active Substance: CAPECITABINE
     Indication: Breast cancer female
     Dosage: FREQUENCY : TWICE A DAY;?
     Route: 048
     Dates: start: 20220526, end: 20220713
  2. ALBUTEROL [Concomitant]
  3. ASPIRIN [Concomitant]
     Active Substance: ASPIRIN
  4. DIPHENHYDRAMINE [Concomitant]
  5. FAMOTIDINE [Concomitant]
  6. ALBUTEROL\IPRATROPIUM [Concomitant]
     Active Substance: ALBUTEROL\IPRATROPIUM
  7. VITAMIN D3 [Concomitant]
     Active Substance: CHOLECALCIFEROL
  8. LETROZOLE [Concomitant]
  9. LEVOTHYROXINE [Concomitant]
  10. LORATADINE [Concomitant]
  11. NORCO [Concomitant]
  12. PERFOROMIST [Concomitant]
  13. PULMICORT [Concomitant]

REACTIONS (2)
  - Disease progression [None]
  - Drug intolerance [None]
